FAERS Safety Report 9407990 (Version 1)
Quarter: 2013Q3

REPORT INFORMATION
  Report Type: Spontaneous
  Country: US (occurrence: US)
  Receive Date: 20130718
  Receipt Date: 20130718
  Transmission Date: 20140515
  Serious: No
  Sender: FDA-Public Use
  Company Number: US-009507513-1307USA007289

PATIENT
  Age: 19 Year
  Sex: Female

DRUGS (1)
  1. SAPHRIS [Suspect]
     Route: 048

REACTIONS (3)
  - Breast enlargement [Unknown]
  - Amenorrhoea [Unknown]
  - Feeling abnormal [Unknown]
